FAERS Safety Report 25572441 (Version 1)
Quarter: 2025Q3

REPORT INFORMATION
  Report Type: Spontaneous
  Country: EU (occurrence: EU)
  Receive Date: 20250717
  Receipt Date: 20250717
  Transmission Date: 20251021
  Serious: Yes (Other)
  Sender: ELI LILLY AND COMPANY
  Company Number: None

PATIENT
  Age: 43 Year
  Sex: Female
  Weight: 61 kg

DRUGS (2)
  1. DULOXETINE HYDROCHLORIDE [Suspect]
     Active Substance: DULOXETINE HYDROCHLORIDE
     Indication: Depression
     Dosage: 90 MG 1V./DAY
     Route: 048
     Dates: start: 202206, end: 202403
  2. LURASIDONE [Suspect]
     Active Substance: LURASIDONE
     Indication: Psychotic disorder
     Dosage: 111 MG 1 V./DAY
     Route: 048
     Dates: start: 202205, end: 202501

REACTIONS (3)
  - Tooth discolouration [Recovering/Resolving]
  - Emotional distress [Unknown]
  - Withdrawal syndrome [Unknown]

NARRATIVE: CASE EVENT DATE: 20230701
